FAERS Safety Report 8546182-1 (Version None)
Quarter: 2012Q3

REPORT INFORMATION
  Report Type: 
  Country: None (occurrence: None)
  Receive Date: 20120727
  Receipt Date: 20120723
  Transmission Date: 20120928
  Serious: Yes (Disabling, Other)
  Sender: FDA-Public Use
  Company Number: PHHY2012GB063165

PATIENT
  Age: 75 Year
  Sex: Female

DRUGS (6)
  1. RAMIPRIL [Suspect]
     Indication: ACUTE CORONARY SYNDROME
     Dosage: 7.5 MG
     Route: 048
     Dates: start: 20120125, end: 20120530
  2. ALBUTEROL SULATE [Concomitant]
  3. PERINDOPRIL ERBUMINE [Concomitant]
     Dosage: 2 MG, UNK
     Route: 048
  4. BECLOMETHASONE DIPROPIONATE [Concomitant]
     Dosage: 2 DF, BID
  5. BENDROFLUMETHIAZIDE [Concomitant]
     Dosage: 2.5 MG
  6. CALCICHEW D3 [Concomitant]
     Dosage: 1 DF, UNK
     Route: 048

REACTIONS (3)
  - LEFT VENTRICULAR DYSFUNCTION [None]
  - OEDEMA PERIPHERAL [None]
  - PERICARDIAL EFFUSION [None]
